FAERS Safety Report 7998201-9 (Version None)
Quarter: 2011Q4

REPORT INFORMATION
  Report Type: 
  Country: None (occurrence: None)
  Receive Date: 20111221
  Receipt Date: 20110407
  Transmission Date: 20120403
  Serious: No
  Sender: FDA-Public Use
  Company Number: US-GLAXOSMITHKLINE-A0921818A

PATIENT
  Sex: Female

DRUGS (5)
  1. SYNTHROID [Concomitant]
  2. LOVAZA [Suspect]
     Indication: BLOOD CHOLESTEROL INCREASED
     Dosage: 1CAP PER DAY
     Route: 048
     Dates: start: 20100801
  3. BENICAR [Concomitant]
  4. ROPINIROLE [Concomitant]
  5. VITAMIN TAB [Concomitant]

REACTIONS (3)
  - DRUG INEFFECTIVE [None]
  - GASTROOESOPHAGEAL REFLUX DISEASE [None]
  - DYSPHAGIA [None]
